FAERS Safety Report 7960950-6 (Version None)
Quarter: 2011Q4

REPORT INFORMATION
  Report Type: 
  Country: None (occurrence: None)
  Receive Date: 20111207
  Receipt Date: 20111124
  Transmission Date: 20120403
  Serious: Yes (Other)
  Sender: FDA-Public Use
  Company Number: AU-JNJFOC-20111202068

PATIENT
  Sex: Male

DRUGS (3)
  1. CODRAL COUGH, COLD + FLU DAY + NIGHT (DAY) [Suspect]
     Indication: INFLUENZA
     Route: 048
     Dates: start: 20110801
  2. CODRAL COUGH, COLD + FLU DAY + NIGHT (DAY) [Suspect]
     Indication: NASOPHARYNGITIS
     Route: 048
     Dates: start: 20110801
  3. ST JOHN'S WORT [Suspect]
     Indication: DEPRESSION
     Dosage: 4000-8000 MG OVER 24 HOUR PERIOD
     Route: 048

REACTIONS (12)
  - ANXIETY [None]
  - VISUAL IMPAIRMENT [None]
  - AGITATION [None]
  - ANGER [None]
  - MEMORY IMPAIRMENT [None]
  - FEELING HOT [None]
  - PALPITATIONS [None]
  - COLD SWEAT [None]
  - LETHARGY [None]
  - FALL [None]
  - DISSOCIATION [None]
  - CONFUSIONAL STATE [None]
